FAERS Safety Report 18945974 (Version 3)
Quarter: 2022Q3

REPORT INFORMATION
  Report Type: Report from Study
  Country: KE (occurrence: KE)
  Receive Date: 20210226
  Receipt Date: 20220905
  Transmission Date: 20221026
  Serious: Yes (Death, Other)
  Sender: FDA-Public Use
  Company Number: NVSC2021KE042153

PATIENT
  Age: 85 Year
  Sex: Male

DRUGS (2)
  1. SACUBITRIL\VALSARTAN [Suspect]
     Active Substance: SACUBITRIL\VALSARTAN
     Indication: Cardiac failure
     Dosage: 25 MG, BID
     Route: 048
     Dates: start: 2018
  2. SACUBITRIL\VALSARTAN [Suspect]
     Active Substance: SACUBITRIL\VALSARTAN
     Dosage: 25 MG, BID
     Route: 048
     Dates: end: 2022

REACTIONS (7)
  - Mitral valve incompetence [Fatal]
  - Congestive cardiomyopathy [Fatal]
  - Chronic kidney disease [Fatal]
  - Concomitant disease aggravated [Fatal]
  - Cardiac failure [Fatal]
  - Oedema peripheral [Recovering/Resolving]
  - Underdose [Unknown]

NARRATIVE: CASE EVENT DATE: 20180101
